FAERS Safety Report 8460900-2 (Version None)
Quarter: 2012Q2

REPORT INFORMATION
  Report Type: 
  Country: None (occurrence: None)
  Receive Date: 20120625
  Receipt Date: 20120614
  Transmission Date: 20120825
  Serious: Yes (Hospitalization)
  Sender: FDA-Public Use
  Company Number: US-BIOGENIDEC-2012BI014974

PATIENT
  Sex: Male

DRUGS (17)
  1. SENNA-MINT WAF [Concomitant]
  2. VICODIN [Concomitant]
  3. TYSABRI [Suspect]
     Indication: MULTIPLE SCLEROSIS
     Route: 042
     Dates: start: 20111129, end: 20111129
  4. AMITRIPTYLINE HCL [Concomitant]
  5. DOXAZOSIN MESYLATE [Concomitant]
  6. ATENOLOL [Concomitant]
  7. DIVALPROEX SODIUM [Concomitant]
  8. NITROFURANTOIN [Concomitant]
  9. TRAZODONE HCL [Concomitant]
  10. NAPROXEN [Concomitant]
  11. MULTI-VITAMINS [Concomitant]
  12. BACLOFEN [Concomitant]
  13. DONEPEZIL HCL [Concomitant]
  14. METHYLPHENIDATE [Concomitant]
  15. NAPROXEN [Concomitant]
  16. DOCUSATE [Concomitant]
  17. LACTULOSE [Concomitant]

REACTIONS (1)
  - MULTIPLE SCLEROSIS [None]
